FAERS Safety Report 13284543 (Version 1)
Quarter: 2017Q1

REPORT INFORMATION
  Report Type: Spontaneous
  Country: CA (occurrence: CA)
  Receive Date: 20170301
  Receipt Date: 20170301
  Transmission Date: 20170428
  Serious: Yes (Disabling)
  Sender: FDA-Public Use
  Company Number: CA-TEVA-742877ACC

PATIENT
  Age: 34 Year
  Sex: Male
  Weight: 65.83 kg

DRUGS (11)
  1. TEVA-PREDNISONE [Suspect]
     Active Substance: PREDNISONE
     Indication: BRONCHITIS
  2. NEORAL [Concomitant]
     Active Substance: CYCLOSPORINE
  3. CITALOPRAM [Concomitant]
     Active Substance: CITALOPRAM HYDROBROMIDE
  4. NOVO-GESIC TAB 325MG [Concomitant]
  5. VALTREX [Concomitant]
     Active Substance: VALACYCLOVIR HYDROCHLORIDE
  6. SYMBICORT 200 TURBUHALER [Concomitant]
  7. VITAMIN D [Concomitant]
     Active Substance: CHOLECALCIFEROL
  8. NIFEDIPINE. [Concomitant]
     Active Substance: NIFEDIPINE
  9. TEVA-PREDNISONE [Suspect]
     Active Substance: PREDNISONE
     Indication: SINUSITIS
     Dosage: 50 MILLIGRAM DAILY;
     Route: 048
  10. AVELOX [Concomitant]
     Active Substance: MOXIFLOXACIN HYDROCHLORIDE
  11. IBUPROFEN. [Concomitant]
     Active Substance: IBUPROFEN

REACTIONS (3)
  - Myopia [Not Recovered/Not Resolved]
  - Concomitant disease aggravated [Not Recovered/Not Resolved]
  - Visual acuity reduced [Not Recovered/Not Resolved]
